FAERS Safety Report 7625816-X (Version None)
Quarter: 2011Q3

REPORT INFORMATION
  Report Type: 
  Country: None (occurrence: None)
  Receive Date: 20110721
  Receipt Date: 20110712
  Transmission Date: 20111222
  Serious: Yes (Other)
  Sender: FDA-Public Use
  Company Number: IT-ELI_LILLY_AND_COMPANY-IT200912002036

PATIENT
  Sex: Female

DRUGS (6)
  1. FOLIC ACID [Concomitant]
     Dosage: 270 MG/CYCLE
     Route: 048
     Dates: start: 20090811, end: 20090908
  2. DEXAMETHASONE SODIUM PHOSPHATE [Concomitant]
     Dosage: 16 MG/CYCLE
     Route: 065
     Dates: start: 20090817, end: 20090908
  3. DOBETIN [Concomitant]
     Dosage: 1000 UG/CYCLE
     Route: 030
     Dates: start: 20090811, end: 20090908
  4. ALIMTA [Suspect]
     Dosage: UNK, UNKNOWN
     Route: 065
     Dates: start: 20090101, end: 20090101
  5. ALIMTA [Suspect]
     Indication: LUNG ADENOCARCINOMA
     Dosage: 790 MG/CYCLE
     Route: 042
     Dates: start: 20090818, end: 20090908
  6. ALIMTA [Suspect]
     Dosage: 75 %, UNKNOWN
     Route: 065
     Dates: start: 20090101

REACTIONS (1)
  - HEPATOTOXICITY [None]
